FAERS Safety Report 8530911-7 (Version None)
Quarter: 2012Q3

REPORT INFORMATION
  Report Type: 
  Country: None (occurrence: None)
  Receive Date: 20120723
  Receipt Date: 20120716
  Transmission Date: 20120928
  Serious: Yes (Other)
  Sender: FDA-Public Use
  Company Number: US-ASTRAZENECA-2011SE37290

PATIENT
  Age: 50 Year
  Sex: Female

DRUGS (3)
  1. NEXIUM [Suspect]
     Dosage: 2 CAPSULE
     Route: 048
  2. PRILOSEC [Suspect]
     Route: 048
  3. NEXIUM [Suspect]
     Dosage: 1 CAPSULE
     Route: 048

REACTIONS (11)
  - BREAST CANCER [None]
  - HYPERTENSION [None]
  - OBSTRUCTION GASTRIC [None]
  - HEARING IMPAIRED [None]
  - MALAISE [None]
  - GAIT DISTURBANCE [None]
  - GASTRIC DISORDER [None]
  - ORAL PAIN [None]
  - DYSPEPSIA [None]
  - INTENTIONAL DRUG MISUSE [None]
  - DRUG DOSE OMISSION [None]
